FAERS Safety Report 25122145 (Version 2)
Quarter: 2025Q3

REPORT INFORMATION
  Report Type: Report from Study
  Country: US (occurrence: US)
  Receive Date: 20250326
  Receipt Date: 20250809
  Transmission Date: 20251021
  Serious: Yes (Other)
  Sender: ALEXION PHARMACEUTICALS
  Company Number: US-AstraZeneca-CH-00831601A

PATIENT
  Age: 67 Year
  Sex: Female
  Weight: 61 kg

DRUGS (5)
  1. ACALABRUTINIB [Suspect]
     Active Substance: ACALABRUTINIB
     Indication: Chronic lymphocytic leukaemia
     Dosage: 100 MILLIGRAM, Q12H
     Dates: start: 20250301
  2. LACTOBACILLUS ACIDOPHILUS [Concomitant]
     Active Substance: LACTOBACILLUS ACIDOPHILUS
  3. FOLIC ACID [Concomitant]
     Active Substance: FOLIC ACID
  4. INSULIN LISPRO [Concomitant]
     Active Substance: INSULIN LISPRO
  5. VITAMINS [Concomitant]
     Active Substance: VITAMINS

REACTIONS (15)
  - Diabetes mellitus [Unknown]
  - Decreased appetite [Unknown]
  - Fatigue [Unknown]
  - Dyspnoea [Unknown]
  - Insomnia [Unknown]
  - Night sweats [Unknown]
  - Injection site bruising [Unknown]
  - Wound [Unknown]
  - Epistaxis [Unknown]
  - Vision blurred [Unknown]
  - Constipation [Unknown]
  - Localised infection [Unknown]
  - Abdominal distension [Unknown]
  - Haemorrhagic diathesis [Unknown]
  - Dry skin [Unknown]
